FAERS Safety Report 10228085 (Version 1)
Quarter: 2014Q2

REPORT INFORMATION
  Report Type: Spontaneous
  Country: US (occurrence: US)
  Receive Date: 20140610
  Receipt Date: 20140610
  Transmission Date: 20141212
  Serious: Yes (Hospitalization)
  Sender: FDA-Public Use
  Company Number: US-BAYER-2014-081667

PATIENT
  Age: 43 Year
  Sex: Female

DRUGS (18)
  1. YAZ [Suspect]
  2. KLONOPIN [Concomitant]
     Dosage: UNK
     Dates: start: 20110927
  3. LYRICA [Concomitant]
     Dosage: UNK
     Dates: start: 20110927
  4. LYRICA [Concomitant]
     Dosage: 25 MG, UNK
     Dates: start: 20110707
  5. LYRICA [Concomitant]
     Dosage: 25 MG, UNK
     Dates: start: 20110707
  6. EFFEXOR [Concomitant]
     Dosage: UNK
     Dates: start: 20110927
  7. TOPAMAX [Concomitant]
     Dosage: UNK
     Dates: start: 20110927
  8. DESYREL [Concomitant]
     Dosage: UNK
     Dates: start: 20110929
  9. CRESTOR [Concomitant]
     Dosage: UNK
     Dates: start: 20110927
  10. TYLENOL [PARACETAMOL] [Concomitant]
     Dosage: UNK
     Dates: start: 20110927
  11. CLONAZEPAM [Concomitant]
     Dosage: 0.5 MG, UNK
  12. VYVANSE [Concomitant]
     Dosage: 30 MG, UNK
  13. TOPIRAMATE [Concomitant]
     Dosage: 100 MG, UNK
  14. NAPROXEN SODIUM [Concomitant]
     Dosage: 550 MG, UNK
  15. BACLOFEN [Concomitant]
     Dosage: 10 MG, UNK
  16. PRISTIQ [Concomitant]
     Dosage: 100 MG, UNK
  17. TRAZODONE [Concomitant]
     Dosage: 100 MG, UNK
  18. PROPRANOLOL [Concomitant]
     Dosage: 20 MG, UNK

REACTIONS (1)
  - Cerebrovascular accident [None]
